FAERS Safety Report 9423551 (Version 2)
Quarter: 2013Q3

REPORT INFORMATION
  Report Type: Spontaneous
  Country: US (occurrence: US)
  Receive Date: 20130726
  Receipt Date: 20130910
  Transmission Date: 20140515
  Serious: Yes (Death)
  Sender: FDA-Public Use
  Company Number: US-GLAXOSMITHKLINE-A1034404A

PATIENT
  Age: 50 Year
  Sex: Female

DRUGS (7)
  1. VOTRIENT [Suspect]
     Indication: SOFT TISSUE CANCER
     Dosage: 600MG AS DIRECTED
     Route: 048
     Dates: start: 20130427
  2. TYLENOL [Concomitant]
  3. ATENOLOL [Concomitant]
  4. LASIX [Concomitant]
  5. PERCOCET [Concomitant]
  6. LEXAPRO [Concomitant]
  7. WARFARIN [Concomitant]

REACTIONS (1)
  - Sarcoma metastatic [Fatal]
